FAERS Safety Report 16675221 (Version 1)
Quarter: 2019Q3

REPORT INFORMATION
  Report Type: Report from Study
  Country: ZA (occurrence: ZA)
  Receive Date: 20190806
  Receipt Date: 20190806
  Transmission Date: 20191004
  Serious: Yes (Other)
  Sender: FDA-Public Use
  Company Number: ZA-GILEAD-2019-0422123

PATIENT
  Age: 27 Year
  Sex: Female

DRUGS (13)
  1. BLINDED EMTRICITABINE/TENOFOVIR DISOPROXIL FUMARATE [Suspect]
     Active Substance: EMTRICITABINE\TENOFOVIR DISOPROXIL
     Dosage: 30 MG, QD (CABOTEGRAVIR/PLACEBO
     Route: 048
     Dates: start: 20190301, end: 20190404
  2. BLINDED CABOTEGRAVIR [Suspect]
     Active Substance: CABOTEGRAVIR
     Dosage: 1 DOSE CYCLICALLY (CABOTEGRAVIR/PLACEBO
     Route: 030
     Dates: start: 20190405, end: 20190405
  3. BLINDED EMTRICITABINE/TENOFOVIR DISOPROXIL FUMARATE [Suspect]
     Active Substance: EMTRICITABINE\TENOFOVIR DISOPROXIL
     Dosage: 1 DOSE CYCLICALLY (CABOTEGRAVIR/PLACEBO
     Route: 030
     Dates: start: 20190405, end: 20190405
  4. BLINDED PLACEBO [Suspect]
     Active Substance: INVESTIGATIONAL PRODUCT
     Dosage: 1 DOSE CYCLICALLY (CABOTEGRAVIR/PLACEBO
     Route: 030
     Dates: start: 20190503, end: 20190503
  5. BLINDED PLACEBO [Suspect]
     Active Substance: INVESTIGATIONAL PRODUCT
     Indication: PROPHYLAXIS AGAINST HIV INFECTION
     Dosage: 1 DOSE (300/200 MG), QD (E/TDF/PLACEBO
     Route: 048
     Dates: start: 20190301
  6. BLINDED CABOTEGRAVIR [Suspect]
     Active Substance: CABOTEGRAVIR
     Dosage: 30 MG, QD (CABOTEGRAVIR/PLACEBO
     Route: 048
     Dates: start: 20190301, end: 20190404
  7. BLINDED EMTRICITABINE/TENOFOVIR DISOPROXIL FUMARATE [Suspect]
     Active Substance: EMTRICITABINE\TENOFOVIR DISOPROXIL
     Dosage: 1 DOSE CYCLICALLY (CABOTEGRAVIR/PLACEBO
     Route: 030
     Dates: start: 20190503, end: 20190503
  8. BLINDED CABOTEGRAVIR [Suspect]
     Active Substance: CABOTEGRAVIR
     Dosage: 1 DOSE CYCLICALLY (CABOTEGRAVIR/PLACEBO
     Route: 030
     Dates: start: 20190503, end: 20190503
  9. BLINDED CABOTEGRAVIR [Suspect]
     Active Substance: CABOTEGRAVIR
     Indication: PROPHYLAXIS AGAINST HIV INFECTION
     Dosage: 1 DOSE (300/200 MG), QD (E/TDF/PLACEBO
     Route: 048
     Dates: start: 20190301
  10. BLINDED EMTRICITABINE/TENOFOVIR DISOPROXIL FUMARATE [Suspect]
     Active Substance: EMTRICITABINE\TENOFOVIR DISOPROXIL
     Indication: PROPHYLAXIS AGAINST HIV INFECTION
     Dosage: 1 DOSE (300/200 MG), QD (E/TDF/PLACEBO
     Route: 048
     Dates: start: 20190301
  11. MEDROXYPROGESTERONE ACETATE. [Concomitant]
     Active Substance: MEDROXYPROGESTERONE ACETATE
  12. BLINDED PLACEBO [Suspect]
     Active Substance: INVESTIGATIONAL PRODUCT
     Dosage: 1 DOSE CYCLICALLY (CABOTEGRAVIR/PLACEBO
     Route: 030
     Dates: start: 20190405, end: 20190405
  13. BLINDED PLACEBO [Suspect]
     Active Substance: INVESTIGATIONAL PRODUCT
     Dosage: 30 MG, QD (CABOTEGRAVIR/PLACEBO
     Route: 048
     Dates: start: 20190301, end: 20190404

REACTIONS (1)
  - Suicide attempt [Recovered/Resolved]

NARRATIVE: CASE EVENT DATE: 20190429
